FAERS Safety Report 10337775 (Version 1)
Quarter: 2014Q3

REPORT INFORMATION
  Report Type: Report from Study
  Country: US (occurrence: US)
  Receive Date: 20140724
  Receipt Date: 20140724
  Transmission Date: 20150326
  Serious: Yes (Other)
  Sender: FDA-Public Use
  Company Number: US-BRISTOL-MYERS SQUIBB COMPANY-21212667

PATIENT
  Age: 64 Year
  Sex: Female
  Weight: 53.51 kg

DRUGS (1)
  1. ABATACEPT SUBQ INJECTION 125MG/ML [Suspect]
     Active Substance: ABATACEPT
     Indication: RHEUMATOID ARTHRITIS
     Dosage: LAST INJECTION WAS ON 15JUL2014
     Route: 058
     Dates: start: 201405

REACTIONS (2)
  - Arthropathy [Unknown]
  - Peripheral swelling [Unknown]
